FAERS Safety Report 6931014-5 (Version None)
Quarter: 2010Q3

REPORT INFORMATION
  Report Type: 
  Country: None (occurrence: None)
  Receive Date: 20100818
  Receipt Date: 20100806
  Transmission Date: 20110219
  Serious: Yes (Other)
  Sender: FDA-Public Use
  Company Number: US-WYE-H16800010

PATIENT
  Age: 25 Year
  Sex: Female

DRUGS (1)
  1. PRISTIQ [Suspect]
     Dosage: UNKNOWN DOSE

REACTIONS (1)
  - TRISMUS [None]
